FAERS Safety Report 5402034-7 (Version None)
Quarter: 2007Q3

REPORT INFORMATION
  Report Type: 
  Country: None (occurrence: None)
  Receive Date: 20070727
  Receipt Date: 20070712
  Transmission Date: 20080115
  Serious: Yes (Death, Hospitalization)
  Sender: FDA-Public Use
  Company Number: 2007001280

PATIENT
  Age: 73 Year
  Sex: Male

DRUGS (1)
  1. ERLOTINIB (TABLET) (ERLOTINIB HCL) [Suspect]
     Indication: NON-SMALL CELL LUNG CANCER
     Dosage: 150 MG (QD), ORAL
     Route: 048
     Dates: start: 20060326, end: 20070519

REACTIONS (5)
  - BONE PAIN [None]
  - DYSPNOEA [None]
  - NON-CARDIAC CHEST PAIN [None]
  - OSTEOPOROTIC FRACTURE [None]
  - THORACIC VERTEBRAL FRACTURE [None]
